FAERS Safety Report 17889831 (Version 1)
Quarter: 2020Q2

REPORT INFORMATION
  Report Type: Report from Study
  Country: None (occurrence: US)
  Receive Date: 20200612
  Receipt Date: 20200612
  Transmission Date: 20200714
  Serious: Yes (Hospitalization, Other)
  Sender: FDA-Public Use
  Company Number: US-BIOVITRUM-2020US0076

PATIENT
  Age: 17 Year
  Sex: Male

DRUGS (1)
  1. KINERET [Suspect]
     Active Substance: ANAKINRA
     Indication: STILL^S DISEASE
     Route: 058
     Dates: start: 20190425

REACTIONS (10)
  - Condition aggravated [Unknown]
  - Viral infection [Unknown]
  - Platelet count decreased [Unknown]
  - White blood cell count decreased [Unknown]
  - Chest pain [Unknown]
  - Liver function test abnormal [Unknown]
  - Off label use [Not Recovered/Not Resolved]
  - Back pain [Unknown]
  - Still^s disease [Unknown]
  - Pyrexia [Unknown]

NARRATIVE: CASE EVENT DATE: 20190425
